FAERS Safety Report 10233342 (Version 1)
Quarter: 2014Q2

REPORT INFORMATION
  Report Type: Spontaneous
  Country: US (occurrence: US)
  Receive Date: 20140612
  Receipt Date: 20140612
  Transmission Date: 20141212
  Serious: Yes (Other)
  Sender: FDA-Public Use
  Company Number: US-PFIZER INC-2014157393

PATIENT
  Age: 71 Year
  Sex: Female

DRUGS (3)
  1. LYRICA [Suspect]
     Indication: SPONDYLITIS
     Dosage: UNK
     Dates: start: 2014
  2. LYRICA [Suspect]
     Indication: ARTHRITIS
  3. LYRICA [Suspect]
     Indication: PAIN

REACTIONS (7)
  - Myocardial infarction [Unknown]
  - Therapeutic response changed [Unknown]
  - Nausea [Unknown]
  - Feeling abnormal [Unknown]
  - Dizziness [Unknown]
  - Hypertension [Unknown]
  - Vomiting [Unknown]
